FAERS Safety Report 23674473 (Version 1)
Quarter: 2024Q1

REPORT INFORMATION
  Report Type: Spontaneous
  Country: CN (occurrence: CN)
  Receive Date: 20240326
  Receipt Date: 20240326
  Transmission Date: 20240409
  Serious: Yes (Life-Threatening)
  Sender: FDA-Public Use
  Company Number: CN-NAPPMUNDI-GBR-2024-0115283

PATIENT
  Age: 67 Year
  Sex: Male
  Weight: 46 kg

DRUGS (5)
  1. OXYCODONE HYDROCHLORIDE [Suspect]
     Active Substance: OXYCODONE HYDROCHLORIDE
     Indication: Analgesic therapy
     Dosage: 10 MILLIGRAM, Q12H
     Route: 048
     Dates: start: 20240226, end: 20240308
  2. FLURBIPROFEN AXETIL [Suspect]
     Active Substance: FLURBIPROFEN AXETIL
     Indication: Analgesic therapy
     Dosage: 50 MILLIGRAM, DAILY (QD)
     Route: 041
     Dates: start: 20240226, end: 20240308
  3. SODIUM CHLORIDE [Suspect]
     Active Substance: SODIUM CHLORIDE
     Indication: Analgesic therapy
     Dosage: QD
     Route: 041
     Dates: start: 20240226
  4. SODIUM CHLORIDE [Suspect]
     Active Substance: SODIUM CHLORIDE
     Dosage: 250 MILLILITER
     Route: 041
     Dates: start: 20240306
  5. DOCETAXEL [Suspect]
     Active Substance: DOCETAXEL\DOCETAXEL ANHYDROUS
     Indication: Toxicity to various agents
     Dosage: 80 MILLIGRAM, DAILY
     Route: 041
     Dates: start: 20240306, end: 20240306

REACTIONS (2)
  - Lower gastrointestinal haemorrhage [Recovering/Resolving]
  - Myelosuppression [Recovering/Resolving]

NARRATIVE: CASE EVENT DATE: 20240309
